FAERS Safety Report 11279736 (Version 1)
Quarter: 2015Q3

REPORT INFORMATION
  Report Type: Spontaneous
  Country: US (occurrence: None)
  Receive Date: 20150716
  Receipt Date: 20150716
  Transmission Date: 20151125
  Serious: Yes (Life-Threatening, Other)
  Sender: FDA-Public Use
  Company Number: None

PATIENT
  Age: 60 Year
  Sex: Female

DRUGS (1)
  1. TRAZADONE HCL [Suspect]
     Active Substance: TRAZODONE HYDROCHLORIDE
     Indication: SLEEP DISORDER
     Dosage: 150 MG AT BEDTIME TAKEN BY MOUTH
     Route: 048
     Dates: start: 20141201, end: 20150501

REACTIONS (2)
  - Product physical issue [None]
  - Choking [None]
